FAERS Safety Report 23526634 (Version 8)
Quarter: 2024Q3

REPORT INFORMATION
  Report Type: Spontaneous
  Country: US (occurrence: US)
  Receive Date: 20240215
  Receipt Date: 20240729
  Transmission Date: 20241016
  Serious: No
  Sender: PFIZER
  Company Number: US-PFIZER INC-202400034837

PATIENT
  Age: 55 Year
  Sex: Male
  Weight: 122.47 kg

DRUGS (3)
  1. GENOTROPIN [Suspect]
     Active Substance: SOMATROPIN
     Indication: Hypothalamo-pituitary disorder
     Dosage: 1.2 MG, DAILY (INJECTED ON A DAILY BASIS)
  2. GENOTROPIN [Suspect]
     Active Substance: SOMATROPIN
     Dosage: UNK
  3. HUMIRA [Concomitant]
     Active Substance: ADALIMUMAB
     Dosage: UNK

REACTIONS (8)
  - Device mechanical issue [Unknown]
  - Device leakage [Unknown]
  - Device physical property issue [Unknown]
  - Drug dose omission by device [Unknown]
  - Accidental exposure to product [Unknown]
  - Exposure via skin contact [Unknown]
  - Muscular weakness [Unknown]
  - Weight increased [Unknown]
